FAERS Safety Report 23143982 (Version 1)
Quarter: 2023Q4

REPORT INFORMATION
  Report Type: Spontaneous
  Country: ES (occurrence: ES)
  Receive Date: 20231103
  Receipt Date: 20231103
  Transmission Date: 20240109
  Serious: Yes (Hospitalization, Other)
  Sender: FDA-Public Use
  Company Number: ES-UCBSA-2023032077

PATIENT
  Age: 40 Year
  Sex: Male

DRUGS (28)
  1. CARBAMAZEPINE [Suspect]
     Active Substance: CARBAMAZEPINE
     Indication: New onset refractory status epilepticus
     Dosage: UNK
     Route: 065
  2. FENTANYL [Suspect]
     Active Substance: FENTANYL\FENTANYL CITRATE
     Indication: New onset refractory status epilepticus
     Dosage: UNK
     Route: 065
  3. KETAMINE [Suspect]
     Active Substance: KETAMINE
     Indication: Anaesthesia
     Dosage: UNK
     Route: 042
  4. KETAMINE [Suspect]
     Active Substance: KETAMINE
     Indication: New onset refractory status epilepticus
  5. LEVETIRACETAM [Suspect]
     Active Substance: LEVETIRACETAM
     Indication: New onset refractory status epilepticus
     Dosage: UNK
     Route: 065
  6. LEVETIRACETAM [Suspect]
     Active Substance: LEVETIRACETAM
     Indication: Status epilepticus
  7. LACOSAMIDE [Suspect]
     Active Substance: LACOSAMIDE
     Indication: New onset refractory status epilepticus
     Dosage: UNK
     Route: 065
  8. LACOSAMIDE [Suspect]
     Active Substance: LACOSAMIDE
     Indication: Status epilepticus
  9. MIDAZOLAM [Suspect]
     Active Substance: MIDAZOLAM
     Indication: New onset refractory status epilepticus
     Dosage: UNK
     Route: 042
  10. MIDAZOLAM [Suspect]
     Active Substance: MIDAZOLAM
     Indication: Generalised tonic-clonic seizure
  11. PENTOTHAL [Suspect]
     Active Substance: THIOPENTAL SODIUM
     Indication: New onset refractory status epilepticus
     Dosage: UNK
     Route: 042
  12. PENTOTHAL [Suspect]
     Active Substance: THIOPENTAL SODIUM
     Indication: Anaesthesia
  13. PERAMPANEL [Suspect]
     Active Substance: PERAMPANEL
     Indication: New onset refractory status epilepticus
     Dosage: UNK
     Route: 065
  14. PHENOBARBITAL [Suspect]
     Active Substance: PHENOBARBITAL
     Indication: New onset refractory status epilepticus
     Dosage: UNK
     Route: 065
  15. PHENOBARBITAL [Suspect]
     Active Substance: PHENOBARBITAL
     Indication: Status epilepticus
  16. PHENYTOIN [Suspect]
     Active Substance: PHENYTOIN
     Indication: Status epilepticus
     Dosage: UNK
     Route: 065
  17. PHENYTOIN [Suspect]
     Active Substance: PHENYTOIN
     Indication: New onset refractory status epilepticus
  18. PROPOFOL [Suspect]
     Active Substance: PROPOFOL
     Indication: New onset refractory status epilepticus
     Dosage: UNK
     Route: 042
  19. PROPOFOL [Suspect]
     Active Substance: PROPOFOL
     Indication: Anaesthesia
  20. TOPIRAMATE [Suspect]
     Active Substance: TOPIRAMATE
     Indication: New onset refractory status epilepticus
     Dosage: UNK
     Route: 065
  21. VALPROIC ACID [Suspect]
     Active Substance: VALPROIC ACID
     Indication: New onset refractory status epilepticus
     Dosage: UNK
     Route: 065
  22. ACYCLOVIR [Concomitant]
     Active Substance: ACYCLOVIR
     Indication: Infection prophylaxis
     Dosage: UNK
     Route: 065
  23. AMPICILLIN [Concomitant]
     Active Substance: AMPICILLIN
     Indication: Infection prophylaxis
     Dosage: UNK
     Route: 065
  24. CEFTRIAXONE [Concomitant]
     Active Substance: CEFTRIAXONE\CEFTRIAXONE SODIUM
     Indication: Infection prophylaxis
     Dosage: UNK
     Route: 065
  25. CEFUROXIME [Concomitant]
     Active Substance: CEFUROXIME
     Indication: Urinary tract infection
     Dosage: UNK
     Route: 065
  26. ASTRAZENECA COVID-19 VACCINE [Concomitant]
     Active Substance: AZD-1222
     Indication: COVID-19 immunisation
     Dosage: UNK, 21 DAYS EARLIER
     Route: 065
  27. CLOBAZAM [Concomitant]
     Active Substance: CLOBAZAM
     Indication: Status epilepticus
     Dosage: UNK
     Route: 065
  28. RITUXIMAB [Concomitant]
     Active Substance: RITUXIMAB
     Indication: Immunosuppression
     Dosage: UNK
     Route: 065

REACTIONS (5)
  - Generalised tonic-clonic seizure [Recovering/Resolving]
  - Quadriparesis [Unknown]
  - Polyneuropathy [Unknown]
  - Nervous system disorder [Unknown]
  - Drug ineffective [Unknown]
